FAERS Safety Report 5722300-5 (Version None)
Quarter: 2008Q2

REPORT INFORMATION
  Report Type: 
  Country: None (occurrence: None)
  Receive Date: 20080429
  Receipt Date: 20071030
  Transmission Date: 20081010
  Serious: No
  Sender: FDA-Public Use
  Company Number: US-ASTRAZENECA-2007UW25164

PATIENT
  Sex: Male
  Weight: 86.2 kg

DRUGS (8)
  1. NEXIUM [Suspect]
     Indication: GASTROOESOPHAGEAL REFLUX DISEASE
     Route: 048
     Dates: start: 20071029
  2. CRESTOR [Interacting]
     Indication: BLOOD CHOLESTEROL INCREASED
     Route: 048
     Dates: start: 20071029
  3. COUMADIN [Interacting]
  4. BLOOD PRESSURE PILL [Concomitant]
  5. DILTIAZEM [Concomitant]
  6. WATER PILL [Concomitant]
  7. ENALAPRIL MALEATE [Concomitant]
  8. DIGITAR [Concomitant]

REACTIONS (3)
  - DRUG INTERACTION [None]
  - EPISTAXIS [None]
  - PRURITUS [None]
